FAERS Safety Report 17932173 (Version 5)
Quarter: 2020Q3

REPORT INFORMATION
  Report Type: Report from Study
  Country: US (occurrence: US)
  Receive Date: 20200623
  Receipt Date: 20200824
  Transmission Date: 20201103
  Serious: Yes (Hospitalization)
  Sender: FDA-Public Use
  Company Number: US-ACTELION-A-NJ2020-205900

PATIENT
  Sex: Female
  Weight: 74.38 kg

DRUGS (7)
  1. OPSUMIT [Suspect]
     Active Substance: MACITENTAN
     Indication: PULMONARY ARTERIAL HYPERTENSION
     Dosage: 10 MG, QD
     Route: 048
  2. UPTRAVI [Suspect]
     Active Substance: SELEXIPAG
     Indication: PULMONARY ARTERIAL HYPERTENSION
     Dosage: 200 MCG, BID
     Route: 048
  3. OPSUMIT [Suspect]
     Active Substance: MACITENTAN
     Dosage: 10 MG, QD
     Route: 048
     Dates: start: 20200721
  4. UPTRAVI [Suspect]
     Active Substance: SELEXIPAG
     Dosage: 800 MCG, BID
     Route: 048
  5. SILDENAFIL. [Concomitant]
     Active Substance: SILDENAFIL
  6. UPTRAVI [Suspect]
     Active Substance: SELEXIPAG
     Dosage: 1200 MCG, BID
     Route: 048
     Dates: end: 20200613
  7. UPTRAVI [Suspect]
     Active Substance: SELEXIPAG
     Dosage: 600 MCG, BID
     Route: 048

REACTIONS (16)
  - Feeling abnormal [Unknown]
  - Dyspnoea [Unknown]
  - Peripheral swelling [Unknown]
  - Oxygen saturation decreased [Unknown]
  - Asthenia [Unknown]
  - Abdominal discomfort [Unknown]
  - Musculoskeletal chest pain [Unknown]
  - Syncope [Unknown]
  - Presyncope [Unknown]
  - Pain in extremity [Unknown]
  - Gait disturbance [Unknown]
  - Insomnia [Unknown]
  - Drug intolerance [Unknown]
  - Abdominal distension [Unknown]
  - Muscular weakness [Unknown]
  - Myalgia [Unknown]
